FAERS Safety Report 22276393 (Version 3)
Quarter: 2023Q2

REPORT INFORMATION
  Report Type: Report from Study
  Country: DE (occurrence: DE)
  Receive Date: 20230503
  Receipt Date: 20230506
  Transmission Date: 20230722
  Serious: Yes (Hospitalization)
  Sender: FDA-Public Use
  Company Number: DE-ABBVIE-4741381

PATIENT
  Age: 74 Year
  Sex: Male

DRUGS (2)
  1. CARBIDOPA\LEVODOPA [Suspect]
     Active Substance: CARBIDOPA\LEVODOPA
     Indication: Parkinson^s disease
     Dosage: MD:3.0ML; CRD:2.5ML/H; CRN:2.0ML/H; ED:2.5ML
     Route: 050
     Dates: start: 20230417
  2. CARBIDOPA\LEVODOPA [Suspect]
     Active Substance: CARBIDOPA\LEVODOPA
     Dosage: TITRATION PHASE
     Route: 050
     Dates: start: 20230412, end: 20230416

REACTIONS (9)
  - Mental disorder [Not Recovered/Not Resolved]
  - Freezing phenomenon [Not Recovered/Not Resolved]
  - Injection site pain [Not Recovered/Not Resolved]
  - Mobility decreased [Not Recovered/Not Resolved]
  - Incision site pain [Recovered/Resolved]
  - Device occlusion [Recovered/Resolved]
  - Abdominal pain upper [Not Recovered/Not Resolved]
  - Sluggishness [Not Recovered/Not Resolved]
  - Depressive symptom [Not Recovered/Not Resolved]

NARRATIVE: CASE EVENT DATE: 20230401
